FAERS Safety Report 9433037 (Version 2)
Quarter: 2013Q3

REPORT INFORMATION
  Report Type: Report from Study
  Country: US (occurrence: US)
  Receive Date: 20130731
  Receipt Date: 20130918
  Transmission Date: 20140515
  Serious: Yes (Other)
  Sender: FDA-Public Use
  Company Number: US-JNJFOC-20130511214

PATIENT
  Age: 74 Year
  Sex: Male
  Weight: 68.04 kg

DRUGS (3)
  1. ZYTIGA [Suspect]
     Indication: PROSTATE CANCER
     Route: 048
     Dates: start: 20130511
  2. ZYTIGA [Suspect]
     Indication: PROSTATE CANCER
     Route: 048
  3. ZYTIGA [Suspect]
     Indication: PROSTATE CANCER
     Route: 048
     Dates: start: 20130504, end: 20130510

REACTIONS (7)
  - Hypersensitivity [Recovered/Resolved]
  - Haemorrhagic diathesis [Recovering/Resolving]
  - Local swelling [Recovering/Resolving]
  - Diarrhoea [Not Recovered/Not Resolved]
  - Nausea [Not Recovered/Not Resolved]
  - Drug prescribing error [Recovered/Resolved]
  - Off label use [Unknown]
